FAERS Safety Report 26062379 (Version 1)
Quarter: 2025Q4

REPORT INFORMATION
  Report Type: Spontaneous
  Country: US (occurrence: US)
  Receive Date: 20251119
  Receipt Date: 20251119
  Transmission Date: 20260118
  Serious: No
  Sender: AZURITY PHARMACEUTICALS
  Company Number: US-AZURITY PHARMACEUTICALS, INC.-AZR202509-002946

PATIENT
  Sex: Female

DRUGS (1)
  1. DANZITEN [Suspect]
     Active Substance: NILOTINIB
     Indication: Philadelphia positive chronic myeloid leukaemia
     Dosage: 190 MILLIGRAM, BID (TWICE DAILY)
     Route: 065
     Dates: start: 20250830

REACTIONS (2)
  - Nausea [Unknown]
  - Product dose omission in error [Unknown]
